FAERS Safety Report 6623487-2 (Version None)
Quarter: 2010Q1

REPORT INFORMATION
  Report Type: 
  Country: None (occurrence: None)
  Receive Date: 20100310
  Receipt Date: 20100301
  Transmission Date: 20100710
  Serious: Yes (Hospitalization, Other)
  Sender: FDA-Public Use
  Company Number: US-ASTRAZENECA-2010SE08874

PATIENT
  Age: 30 Month
  Sex: Female

DRUGS (12)
  1. TOPROL-XL [Suspect]
     Route: 048
     Dates: start: 20051218, end: 20051218
  2. TOPROL-XL [Suspect]
     Route: 048
     Dates: start: 20051219, end: 20051219
  3. TOPAMAX [Concomitant]
  4. SODIUM FLUORIDE [Concomitant]
  5. POLY VI SOL [Concomitant]
  6. REGLAN [Concomitant]
  7. LASIX [Concomitant]
  8. ENALAPRIL MALEATE [Concomitant]
  9. PREVACID [Concomitant]
  10. CLARITIN [Concomitant]
  11. PULMICORT [Concomitant]
  12. ZONEGRAN [Concomitant]

REACTIONS (6)
  - BLOOD PRESSURE DECREASED [None]
  - CONVULSION [None]
  - GRAND MAL CONVULSION [None]
  - HALLUCINATION [None]
  - RENAL DISORDER [None]
  - UNRESPONSIVE TO STIMULI [None]
